FAERS Safety Report 8904241 (Version 1)
Quarter: 2012Q4

REPORT INFORMATION
  Report Type: 
  Country: US (occurrence: US)
  Receive Date: 20121112
  Receipt Date: 20121112
  Transmission Date: 20130627
  Serious: No
  Sender: FDA-Public Use
  Company Number: US-BAYER-2012-115743

PATIENT
  Age: 83 Year
  Sex: Female
  Weight: 63.04 kg

DRUGS (11)
  1. ALEVE CAPLET/TABLET,MIDOL EXTENDED RELIEF CAPLET [Suspect]
     Indication: ARTHRITIS
     Dosage: 2 DF, PRN
     Route: 048
     Dates: start: 2011
  2. ALEVE LIQUID GELS [Suspect]
     Indication: ARTHRITIS
     Dosage: 2 DF, PRN
     Route: 048
     Dates: start: 2011
  3. BYSTOLIC [Concomitant]
  4. SINGULAIR [Concomitant]
  5. GLYBURIDE [Concomitant]
  6. LEVOTHYROXINE [Concomitant]
  7. CRESTOR [Concomitant]
  8. CITRICAL 250 MG + D [Concomitant]
  9. METFORMIN [Concomitant]
  10. CARTIA [Concomitant]
  11. LOSARTAN [Concomitant]

REACTIONS (1)
  - Drug ineffective [None]
